FAERS Safety Report 6741691-X (Version None)
Quarter: 2010Q2

REPORT INFORMATION
  Report Type: 
  Country: None (occurrence: None)
  Receive Date: 20100524
  Receipt Date: 20100512
  Transmission Date: 20101027
  Serious: Yes (Life-Threatening)
  Sender: FDA-Public Use
  Company Number: LEO-2010-00402

PATIENT
  Age: 50 Year
  Sex: Male

DRUGS (2)
  1. INNOHEP [Suspect]
     Indication: PHLEBITIS
     Dosage: 18000 IU,SUBCUTANEOUS
     Route: 058
     Dates: start: 20100101, end: 20100222
  2. PREVISCAN (FLUINDIONE)(20 MILLIGRAM, TABLETS)  PHLEBITIS ORA [Suspect]
     Indication: PHLEBITIS
     Dosage: ORAL
     Route: 048
     Dates: start: 20100101, end: 20100222

REACTIONS (2)
  - HAEMOTHORAX [None]
  - TUMOUR HAEMORRHAGE [None]
